FAERS Safety Report 7565323-6 (Version None)
Quarter: 2011Q2

REPORT INFORMATION
  Report Type: 
  Country: None (occurrence: None)
  Receive Date: 20110623
  Receipt Date: 20110615
  Transmission Date: 20111010
  Serious: Yes (Hospitalization)
  Sender: FDA-Public Use
  Company Number: US-BIOGENIDEC-2011BI022278

PATIENT
  Age: 54 Year
  Sex: Female

DRUGS (1)
  1. TYSABRI [Suspect]
     Indication: MULTIPLE SCLEROSIS
     Route: 042
     Dates: start: 20080101

REACTIONS (7)
  - HYPERTENSION [None]
  - HIATUS HERNIA [None]
  - MUSCLE TIGHTNESS [None]
  - DYSPNOEA [None]
  - PARAESTHESIA [None]
  - PANIC REACTION [None]
  - CHEST PAIN [None]
